FAERS Safety Report 11820057 (Version 1)
Quarter: 2015Q4

REPORT INFORMATION
  Report Type: Other
  Country: SG (occurrence: SG)
  Receive Date: 20151210
  Receipt Date: 20151210
  Transmission Date: 20160305
  Serious: No
  Sender: FDA-Public Use
  Company Number: SG-LUPIN PHARMACEUTICALS INC.-2015-03208

PATIENT
  Sex: Male

DRUGS (1)
  1. OMEPRAZOLE. [Suspect]
     Active Substance: OMEPRAZOLE
     Indication: GASTRITIS
     Dosage: 20MG
     Route: 065

REACTIONS (1)
  - Dermatosis [Unknown]
